FAERS Safety Report 5937062-6 (Version None)
Quarter: 2008Q4

REPORT INFORMATION
  Report Type: 
  Country: None (occurrence: None)
  Receive Date: 20081021
  Receipt Date: 20080505
  Transmission Date: 20090506
  Serious: Yes (Other)
  Sender: FDA-Public Use
  Company Number: HQWYE006427FEB06

PATIENT
  Age: 36 Year
  Sex: Female

DRUGS (3)
  1. PREMARIN [Suspect]
     Indication: HORMONE REPLACEMENT THERAPY
  2. PREMARIN [Suspect]
     Indication: MENOPAUSAL SYMPTOMS
  3. CLIMARA [Suspect]

REACTIONS (3)
  - BENIGN BREAST NEOPLASM [None]
  - BREAST CANCER [None]
  - THROMBOSIS [None]
